FAERS Safety Report 11084360 (Version 2)
Quarter: 2015Q2

REPORT INFORMATION
  Report Type: Spontaneous
  Country: US (occurrence: US)
  Receive Date: 20150502
  Receipt Date: 20150525
  Transmission Date: 20150821
  Serious: No
  Sender: FDA-Public Use
  Company Number: US-JNJFOC-20140309027

PATIENT
  Age: 22 Year
  Sex: Female
  Weight: 76.2 kg

DRUGS (3)
  1. FISH OIL [Concomitant]
     Active Substance: FISH OIL
     Indication: MINERAL SUPPLEMENTATION
     Route: 048
     Dates: start: 201401
  2. ORTHO EVRA [Suspect]
     Active Substance: ETHINYL ESTRADIOL\NORELGESTROMIN
     Indication: UTERINE SPASM
     Route: 062
     Dates: start: 20140225
  3. ORTHO EVRA [Suspect]
     Active Substance: ETHINYL ESTRADIOL\NORELGESTROMIN
     Indication: HAEMORRHAGE
     Route: 062
     Dates: start: 20140225

REACTIONS (6)
  - Wrong technique in drug usage process [Unknown]
  - Product quality issue [Unknown]
  - Product quality issue [Unknown]
  - Product use issue [Unknown]
  - Drug administered at inappropriate site [Unknown]
  - Inappropriate schedule of drug administration [Unknown]

NARRATIVE: CASE EVENT DATE: 201402
